FAERS Safety Report 22630154 (Version 1)
Quarter: 2023Q2

REPORT INFORMATION
  Report Type: Spontaneous
  Country: US (occurrence: US)
  Receive Date: 20230622
  Receipt Date: 20230622
  Transmission Date: 20230722
  Serious: Yes (Other)
  Sender: FDA-Public Use
  Company Number: US-AMGEN-USASP2023105333

PATIENT
  Age: 51 Year
  Sex: Female
  Weight: 80.3 kg

DRUGS (5)
  1. BLINCYTO [Suspect]
     Active Substance: BLINATUMOMAB
     Indication: B-cell type acute leukaemia
     Dosage: 28 MICROGRAM, QD
     Route: 065
  2. BLINCYTO [Suspect]
     Active Substance: BLINATUMOMAB
     Dosage: 9 MICROGRAM, QD
     Route: 065
     Dates: start: 20230531, end: 20230612
  3. XTAMPZA ER [Concomitant]
     Active Substance: OXYCODONE
     Dosage: 18 MILLIGRAM, TID
  4. PROCHLORPERAZINE [Concomitant]
     Active Substance: PROCHLORPERAZINE
  5. CYMBALTA [Concomitant]
     Active Substance: DULOXETINE HYDROCHLORIDE

REACTIONS (6)
  - Neurotoxicity [Unknown]
  - Muscle contractions involuntary [Unknown]
  - Thinking abnormal [Unknown]
  - Headache [Unknown]
  - Confusional state [Unknown]
  - Tremor [Unknown]

NARRATIVE: CASE EVENT DATE: 20230101
